FAERS Safety Report 15370880 (Version 3)
Quarter: 2018Q4

REPORT INFORMATION
  Report Type: Report from Study
  Country: None (occurrence: CN)
  Receive Date: 20180911
  Receipt Date: 20181015
  Transmission Date: 20190204
  Serious: Yes (Life-Threatening, Other)
  Sender: FDA-Public Use
  Company Number: CN-ABBVIE-18P-035-2473962-00

PATIENT
  Age: 74 Year
  Sex: Female

DRUGS (28)
  1. NORMAL SALINE SOLUTION [Concomitant]
     Indication: PROPHYLAXIS
     Route: 042
     Dates: start: 20180829, end: 20180902
  2. VENETOCLAX. [Suspect]
     Active Substance: VENETOCLAX
     Route: 048
     Dates: start: 20180831, end: 20180831
  3. HYDROXYCARBAMIDE [Concomitant]
     Active Substance: HYDROXYUREA
     Indication: HYPERLEUKOCYTOSIS
     Route: 002
     Dates: start: 20180829, end: 20180830
  4. 5% DEXTROSE IN WATER [Concomitant]
     Indication: PROPHYLAXIS
     Route: 042
     Dates: start: 20180829, end: 20180902
  5. HYDROCHLOROTHIAZIDE. [Concomitant]
     Active Substance: HYDROCHLOROTHIAZIDE
     Indication: DIURETIC THERAPY
     Route: 048
     Dates: start: 20180819, end: 20180827
  6. SPIRONOLACONE [Concomitant]
     Indication: DIURETIC THERAPY
     Route: 048
     Dates: start: 20180819, end: 20180827
  7. VENETOCLAX. [Suspect]
     Active Substance: VENETOCLAX
     Indication: ACUTE MYELOID LEUKAEMIA
     Route: 048
     Dates: start: 20180830, end: 20180830
  8. AZACITIDINE. [Suspect]
     Active Substance: AZACITIDINE
     Indication: ACUTE MYELOID LEUKAEMIA
     Dosage: DAYS 1-7 OF 28 DAY CYCLE
     Route: 058
     Dates: start: 20180830
  9. FEBUXOSTAT. [Concomitant]
     Active Substance: FEBUXOSTAT
     Indication: PROPHYLAXIS
     Route: 048
     Dates: start: 20180829, end: 20180918
  10. CREATINE PHOSPHATE [Concomitant]
     Active Substance: PHOSPHOCREATINE
     Indication: PROPHYLAXIS
     Route: 042
     Dates: start: 20180809, end: 20180827
  11. VENETOCLAX. [Suspect]
     Active Substance: VENETOCLAX
     Route: 048
     Dates: start: 20180901
  12. CREATINE PHOSPHATE [Concomitant]
     Active Substance: PHOSPHOCREATINE
     Route: 042
     Dates: start: 20180829, end: 20180926
  13. REDUCED GLUTATHIONE [Concomitant]
     Route: 042
     Dates: start: 20180919, end: 20180926
  14. RABEPRAZOLE SODIUM. [Concomitant]
     Active Substance: RABEPRAZOLE SODIUM
     Indication: PROPHYLAXIS
     Route: 041
     Dates: start: 20180829, end: 20180918
  15. SODIUM BICARBONATE INJECTION [Concomitant]
     Indication: PROPHYLAXIS
     Route: 042
     Dates: start: 20180829, end: 20180902
  16. ALANYL GLUTAMINE INJECTION [Concomitant]
     Route: 042
     Dates: start: 20180904, end: 20180926
  17. HYDROCHLOROTHIAZIDE. [Concomitant]
     Active Substance: HYDROCHLOROTHIAZIDE
     Indication: BLOOD PRESSURE INCREASED
     Route: 048
     Dates: start: 20180906, end: 20180926
  18. SPIRONOLACONE [Concomitant]
     Indication: BLOOD PRESSURE INCREASED
     Route: 048
     Dates: start: 20180906, end: 20180911
  19. AMINO ACID INJECTION [Concomitant]
     Active Substance: AMINO ACIDS
     Indication: SUPPLEMENTATION THERAPY
     Route: 042
     Dates: start: 20180809, end: 20180827
  20. IMIPENEM AND CILASTATIN SODIUM [Concomitant]
     Active Substance: CILASTATIN SODIUM\IMIPENEM
     Indication: LUNG INFECTION
     Route: 042
     Dates: start: 20180830, end: 20180830
  21. ALANYL GLUTAMINE INJECTION [Concomitant]
     Indication: NUTRITIONAL SUPPLEMENTATION
     Route: 042
     Dates: start: 20180809, end: 20180827
  22. AMINO ACID INJECTION [Concomitant]
     Active Substance: AMINO ACIDS
     Route: 042
     Dates: start: 20180904, end: 20180926
  23. MEROPENEM. [Concomitant]
     Active Substance: MEROPENEM
     Indication: LUNG INFECTION
     Route: 042
     Dates: start: 20180814, end: 20180827
  24. MEROPENEM. [Concomitant]
     Active Substance: MEROPENEM
     Route: 042
     Dates: start: 20180831, end: 20180911
  25. RECOMBINANT HUMAN ERYTHROPOIETIN [Concomitant]
     Active Substance: ERYTHROPOIETIN
     Indication: ANAEMIA
     Route: 059
     Dates: start: 20180901, end: 20180926
  26. RECOMBINANT HUMAN GRANULOCYTE COLONY STIMULATING FACTOR [Concomitant]
     Indication: LEUKOPENIA
     Route: 059
     Dates: start: 20180901, end: 20180920
  27. REDUCED GLUTATHIONE [Concomitant]
     Indication: PROPHYLAXIS
     Route: 042
     Dates: start: 20180829, end: 20180904
  28. COENZYME COMPLEX [Concomitant]
     Active Substance: UNSPECIFIED INGREDIENT
     Indication: CARDIOVASCULAR EVENT PROPHYLAXIS
     Route: 041
     Dates: start: 20180829, end: 20180926

REACTIONS (1)
  - Hypoxia [Recovered/Resolved]

NARRATIVE: CASE EVENT DATE: 20180903
